FAERS Safety Report 4341247-2 (Version None)
Quarter: 2004Q1

REPORT INFORMATION
  Report Type: 
  Country: None (occurrence: None)
  Receive Date: 20040329
  Receipt Date: 20031201
  Transmission Date: 20041129
  Serious: No
  Sender: FDA-Public Use
  Company Number: 03P-163-0243080-00

PATIENT
  Age: 63 Year
  Sex: Female
  Weight: 53.0709 kg

DRUGS (10)
  1. HUMIRA [Suspect]
     Indication: RHEUMATOID ARTHRITIS
     Dosage: 40 MG, 1 IN 2 WK, SUBCUTANEOUS
     Route: 058
     Dates: start: 20030901, end: 20031101
  2. SULFASALAZINE [Concomitant]
  3. HYDROXYCHLOROQUINE PHOSPHATE [Concomitant]
  4. ZOCOR [Concomitant]
  5. UNITHYROID [Concomitant]
  6. PAROXETINE HCL [Concomitant]
  7. DARVOCET [Concomitant]
  8. FEXOFENADIDE HYDROCHLORIDE [Concomitant]
  9. CALCIUM [Concomitant]
  10. FORTEO [Concomitant]

REACTIONS (1)
  - DRUG INEFFECTIVE [None]
